FAERS Safety Report 9889002 (Version 2)
Quarter: 2014Q1

REPORT INFORMATION
  Report Type: Spontaneous
  Country: US (occurrence: US)
  Receive Date: 20140211
  Receipt Date: 20140211
  Transmission Date: 20141002
  Serious: Yes (Other)
  Sender: FDA-Public Use
  Company Number: US-GE HEALTHCARE MEDICAL DIAGNOSTICS-OSCN-PR-1002S-0044

PATIENT
  Age: 43 Year
  Sex: Female
  Weight: 58.05 kg

DRUGS (66)
  1. OMNISCAN [Suspect]
     Indication: PLASMA CELL MYELOMA
     Route: 042
     Dates: start: 19970718, end: 19970718
  2. OMNISCAN [Suspect]
     Indication: NAUSEA
     Dates: start: 19980601, end: 19980601
  3. OMNISCAN [Suspect]
     Indication: VOMITING
     Dates: start: 19990107, end: 19990107
  4. OMNISCAN [Suspect]
     Indication: DEEP VEIN THROMBOSIS
     Dates: start: 19990915, end: 19990915
  5. OMNISCAN [Suspect]
     Indication: HAEMORRHAGIC STROKE
     Dates: start: 20000323, end: 20000323
  6. OMNISCAN [Suspect]
     Dates: start: 20010305, end: 20010305
  7. OMNISCAN [Suspect]
     Dates: start: 20011030, end: 20011030
  8. OMNISCAN [Suspect]
     Dates: start: 20011108, end: 20011108
  9. GADOLINIUM (UNSPECIFIED) [Suspect]
     Indication: PRODUCT USED FOR UNKNOWN INDICATION
     Dates: start: 20041203, end: 20041203
  10. GADOLINIUM (UNSPECIFIED) [Suspect]
     Dates: start: 19990615, end: 19990615
  11. GADOLINIUM (UNSPECIFIED) [Suspect]
     Dates: start: 19990915, end: 19990915
  12. GADOLINIUM (UNSPECIFIED) [Suspect]
     Dates: start: 20000323, end: 20000323
  13. GADOLINIUM (UNSPECIFIED) [Suspect]
     Dates: start: 20020423, end: 20020423
  14. GADOLINIUM (UNSPECIFIED) [Suspect]
  15. MULTIHANCE [Suspect]
     Indication: HEADACHE
     Route: 042
     Dates: start: 20080103, end: 20080103
  16. MULTIHANCE [Suspect]
     Indication: PAIN
     Route: 042
     Dates: start: 20080111, end: 20080111
  17. MULTIHANCE [Suspect]
     Indication: MUSCULAR WEAKNESS
     Route: 042
     Dates: start: 20080325, end: 20080325
  18. MULTIHANCE [Suspect]
     Route: 042
     Dates: start: 20080331, end: 20080331
  19. MULTIHANCE [Suspect]
     Dates: start: 20090103, end: 20090103
  20. MAGNEVIST [Suspect]
     Indication: BACK PAIN
     Route: 042
     Dates: start: 20000830, end: 20000830
  21. MAGNEVIST [Suspect]
     Indication: HEADACHE
     Route: 042
     Dates: start: 20001221, end: 20001221
  22. MAGNEVIST [Suspect]
     Indication: NAUSEA
     Route: 042
     Dates: start: 20010103, end: 20010103
  23. MAGNEVIST [Suspect]
     Indication: MENTAL STATUS CHANGES
     Route: 042
     Dates: start: 20020318, end: 20020318
  24. MAGNEVIST [Suspect]
     Indication: PLASMA CELL MYELOMA
     Route: 042
     Dates: start: 20020326, end: 20020326
  25. MAGNEVIST [Suspect]
     Indication: CEREBRAL INFARCTION
     Dates: start: 20020910, end: 20020910
  26. MAGNEVIST [Suspect]
     Indication: HAEMORRHAGE
     Route: 042
     Dates: start: 20021230, end: 20021230
  27. MAGNEVIST [Suspect]
     Indication: PYREXIA
     Dates: start: 20030813, end: 20030813
  28. MAGNEVIST [Suspect]
     Route: 042
     Dates: start: 20040102, end: 20040102
  29. MAGNEVIST [Suspect]
     Dates: start: 20050629, end: 20050629
  30. MAGNEVIST [Suspect]
     Route: 042
     Dates: start: 20051215, end: 20051215
  31. MAGNEVIST [Suspect]
     Route: 042
     Dates: start: 20061211, end: 20061211
  32. MAGNEVIST [Suspect]
     Route: 042
     Dates: start: 20041203, end: 20041203
  33. MAGNEVIST [Suspect]
     Dates: start: 20050629, end: 20050629
  34. MAGNEVIST [Suspect]
     Dates: start: 20051215, end: 20051215
  35. MAGNEVIST [Suspect]
     Dates: start: 20061211, end: 20061211
  36. PROCRIT [Concomitant]
     Dates: start: 1999
  37. WARFARIN [Concomitant]
     Dates: start: 1999
  38. RENAGEL [Concomitant]
     Dates: start: 1999
  39. NEPHROCAPS [Concomitant]
  40. PREDNISONE [Concomitant]
  41. CHLORTALIDONE [Concomitant]
  42. RANITIDINE [Concomitant]
  43. PAXIL [Concomitant]
  44. NEURONTIN [Concomitant]
     Indication: NEUROPATHY PERIPHERAL
  45. CLARITIN [Concomitant]
  46. ZETIA [Concomitant]
  47. CALCITROL [Concomitant]
  48. DILANTIN [Concomitant]
  49. ZOFRAN [Concomitant]
  50. LASIX [Concomitant]
  51. AMITRIPTYLINE [Concomitant]
  52. OXYCONTIN [Concomitant]
     Indication: PAIN
  53. ATIVAN [Concomitant]
  54. SYNTHROID [Concomitant]
  55. LIPITOR [Concomitant]
  56. THALOMID [Concomitant]
  57. IMITREX [Concomitant]
  58. ACYCLOVIR [Concomitant]
  59. ATENOLOL [Concomitant]
  60. ZOLOFT [Concomitant]
  61. MARINOL [Concomitant]
  62. FAMVIR [Concomitant]
  63. SODIUM BICARBONATE [Concomitant]
  64. EPOGEN [Concomitant]
  65. SENOKOT-S [Concomitant]
  66. DECADRON [Concomitant]
     Indication: PLASMA CELL MYELOMA

REACTIONS (1)
  - Nephrogenic systemic fibrosis [Not Recovered/Not Resolved]
